FAERS Safety Report 6440189-6 (Version None)
Quarter: 2009Q4

REPORT INFORMATION
  Report Type: 
  Country: None (occurrence: None)
  Receive Date: 20091113
  Receipt Date: 20090728
  Transmission Date: 20100525
  Serious: No
  Sender: FDA-Public Use
  Company Number: A0799120A

PATIENT
  Age: 66 Year
  Sex: Male

DRUGS (7)
  1. CARVEDILOL [Suspect]
     Indication: LEFT VENTRICULAR DYSFUNCTION
     Dosage: 12.5MG TWICE PER DAY
     Route: 048
  2. COREG [Suspect]
     Indication: LEFT VENTRICULAR DYSFUNCTION
     Dosage: 1.5TAB TWICE PER DAY
     Route: 048
     Dates: start: 20080701
  3. GLYBURIDE [Concomitant]
  4. LISINOPRIL [Concomitant]
  5. SIMVASTATIN [Concomitant]
  6. PIOGLITAZONE [Concomitant]
  7. ASPIRIN [Concomitant]

REACTIONS (2)
  - GAIT DISTURBANCE [None]
  - MUSCLE SPASMS [None]
